FAERS Safety Report 16432136 (Version 1)
Quarter: 2019Q2

REPORT INFORMATION
  Report Type: Spontaneous
  Country: US (occurrence: US)
  Receive Date: 20190614
  Receipt Date: 20190614
  Transmission Date: 20190711
  Serious: No
  Sender: FDA-Public Use
  Company Number: US-JNJFOC-20150703007

PATIENT
  Age: 29 Year
  Sex: Male
  Weight: 100.25 kg

DRUGS (20)
  1. RISPERDAL [Suspect]
     Active Substance: RISPERIDONE
     Indication: SLEEP DISORDER THERAPY
     Route: 048
     Dates: start: 20090410, end: 20140123
  2. RISPERDAL [Suspect]
     Active Substance: RISPERIDONE
     Indication: AFFECTIVE DISORDER
     Route: 048
     Dates: start: 20090410, end: 20140123
  3. RISPERDAL CONSTA [Suspect]
     Active Substance: RISPERIDONE
     Indication: SCHIZOPHRENIA
     Route: 030
     Dates: start: 20090410, end: 20140123
  4. RISPERDAL CONSTA [Suspect]
     Active Substance: RISPERIDONE
     Indication: SCHIZOAFFECTIVE DISORDER
     Route: 030
     Dates: start: 20090410, end: 20140123
  5. RISPERDAL CONSTA [Suspect]
     Active Substance: RISPERIDONE
     Indication: SLEEP DISORDER THERAPY
     Route: 030
     Dates: start: 20090410, end: 20140123
  6. HALDOL [Concomitant]
     Active Substance: HALOPERIDOL
     Indication: PRODUCT USED FOR UNKNOWN INDICATION
     Route: 065
     Dates: start: 2010
  7. RISPERDAL CONSTA [Suspect]
     Active Substance: RISPERIDONE
     Indication: AFFECTIVE DISORDER
     Route: 030
     Dates: start: 20090410, end: 20140123
  8. RISPERIDONE. [Suspect]
     Active Substance: RISPERIDONE
     Indication: PRODUCT USED FOR UNKNOWN INDICATION
     Route: 030
  9. RISPERDAL [Suspect]
     Active Substance: RISPERIDONE
     Indication: SCHIZOPHRENIA
     Route: 048
     Dates: start: 20090410, end: 20140123
  10. RISPERDAL [Suspect]
     Active Substance: RISPERIDONE
     Indication: SCHIZOAFFECTIVE DISORDER
     Dosage: 1-4 MG
     Route: 048
     Dates: start: 20080603, end: 20150513
  11. RISPERDAL [Suspect]
     Active Substance: RISPERIDONE
     Indication: SLEEP DISORDER THERAPY
     Dosage: 1-4 MG
     Route: 048
     Dates: start: 20080603, end: 20150513
  12. RISPERDAL CONSTA [Suspect]
     Active Substance: RISPERIDONE
     Indication: SLEEP DISORDER THERAPY
     Dosage: 1-4 MG, 37.5 MG
     Route: 030
     Dates: start: 20080603, end: 20150513
  13. RISPERDAL CONSTA [Suspect]
     Active Substance: RISPERIDONE
     Indication: SCHIZOPHRENIA
     Dosage: 1-4 MG, 37.5 MG
     Route: 030
     Dates: start: 20080603, end: 20150513
  14. RISPERDAL CONSTA [Suspect]
     Active Substance: RISPERIDONE
     Indication: SCHIZOAFFECTIVE DISORDER
     Dosage: 1-4 MG, 37.5 MG
     Route: 030
     Dates: start: 20080603, end: 20150513
  15. RISPERIDONE. [Suspect]
     Active Substance: RISPERIDONE
     Indication: PRODUCT USED FOR UNKNOWN INDICATION
     Route: 048
  16. GEODON [Concomitant]
     Active Substance: ZIPRASIDONE HYDROCHLORIDE\ZIPRASIDONE MESYLATE
     Indication: PRODUCT USED FOR UNKNOWN INDICATION
     Route: 065
     Dates: start: 2009
  17. RISPERDAL [Suspect]
     Active Substance: RISPERIDONE
     Indication: SCHIZOPHRENIA
     Dosage: 1-4 MG
     Route: 048
     Dates: start: 20080603, end: 20150513
  18. RISPERDAL [Suspect]
     Active Substance: RISPERIDONE
     Indication: SCHIZOAFFECTIVE DISORDER
     Route: 048
     Dates: start: 20090410, end: 20140123
  19. RISPERDAL [Suspect]
     Active Substance: RISPERIDONE
     Indication: AFFECTIVE DISORDER
     Dosage: 1-4 MG
     Route: 048
     Dates: start: 20080603, end: 20150513
  20. RISPERDAL CONSTA [Suspect]
     Active Substance: RISPERIDONE
     Indication: AFFECTIVE DISORDER
     Dosage: 1-4 MG, 37.5 MG
     Route: 030
     Dates: start: 20080603, end: 20150513

REACTIONS (5)
  - Abnormal weight gain [Unknown]
  - Gynaecomastia [Unknown]
  - Galactorrhoea [Unknown]
  - Hyperprolactinaemia [Unknown]
  - Hyperglycaemia [Unknown]

NARRATIVE: CASE EVENT DATE: 201005
